FAERS Safety Report 21601344 (Version 1)
Quarter: 2022Q4

REPORT INFORMATION
  Report Type: Report from Study
  Country: FR (occurrence: FR)
  Receive Date: 20221116
  Receipt Date: 20221116
  Transmission Date: 20230113
  Serious: Yes (Other)
  Sender: FDA-Public Use
  Company Number: FR-002147023-NVSC2022FR255182

PATIENT
  Age: 51 Year
  Sex: Male
  Weight: 79 kg

DRUGS (67)
  1. NELARABINE [Suspect]
     Active Substance: NELARABINE
     Indication: Acute lymphocytic leukaemia
     Dosage: 3060 MG
     Route: 042
     Dates: start: 20170926
  2. NELARABINE [Suspect]
     Active Substance: NELARABINE
     Dosage: 3060 MG
     Route: 042
     Dates: start: 20170928
  3. NELARABINE [Suspect]
     Active Substance: NELARABINE
     Dosage: 3060 MG
     Route: 042
     Dates: start: 20170930
  4. CYCLOPHOSPHAMIDE [Suspect]
     Active Substance: CYCLOPHOSPHAMIDE
     Indication: Acute lymphocytic leukaemia
     Dosage: 1580 MG
     Route: 042
     Dates: start: 20170707
  5. CYCLOPHOSPHAMIDE [Suspect]
     Active Substance: CYCLOPHOSPHAMIDE
     Dosage: 1580 MG
     Route: 042
     Dates: start: 20170721
  6. CYCLOPHOSPHAMIDE [Suspect]
     Active Substance: CYCLOPHOSPHAMIDE
     Dosage: 1020 MG
     Route: 042
     Dates: start: 20170829
  7. CYCLOPHOSPHAMIDE [Suspect]
     Active Substance: CYCLOPHOSPHAMIDE
     Dosage: 1020 MG
     Route: 042
     Dates: start: 20170909
  8. CYCLOPHOSPHAMIDE [Suspect]
     Active Substance: CYCLOPHOSPHAMIDE
     Dosage: 300 MG
     Route: 042
     Dates: start: 20170926
  9. CYCLOPHOSPHAMIDE [Suspect]
     Active Substance: CYCLOPHOSPHAMIDE
     Dosage: 300 MG
     Route: 042
     Dates: start: 20170928
  10. VINCRISTINE [Suspect]
     Active Substance: VINCRISTINE
     Indication: Acute lymphocytic leukaemia
     Dosage: 2 MG
     Route: 042
     Dates: start: 20170707
  11. VINCRISTINE [Suspect]
     Active Substance: VINCRISTINE
     Dosage: 2 MG
     Route: 042
     Dates: start: 20170714
  12. VINCRISTINE [Suspect]
     Active Substance: VINCRISTINE
     Dosage: 2 MG
     Route: 042
     Dates: start: 20170721
  13. VINCRISTINE [Suspect]
     Active Substance: VINCRISTINE
     Dosage: 2 MG
     Route: 042
     Dates: start: 20170728
  14. VINCRISTINE [Suspect]
     Active Substance: VINCRISTINE
     Dosage: 2 MG
     Route: 042
     Dates: start: 20170825
  15. ETOPOSIDE [Suspect]
     Active Substance: ETOPOSIDE
     Indication: Acute lymphocytic leukaemia
     Dosage: 152 MG
     Route: 042
     Dates: start: 20170829
  16. ETOPOSIDE [Suspect]
     Active Substance: ETOPOSIDE
     Dosage: 152 MG
     Route: 042
     Dates: start: 20170909
  17. ETOPOSIDE [Suspect]
     Active Substance: ETOPOSIDE
     Dosage: 152 MG
     Route: 042
     Dates: start: 20170926
  18. ETOPOSIDE [Suspect]
     Active Substance: ETOPOSIDE
     Dosage: 152 MG
     Route: 042
     Dates: start: 20170928
  19. PREDNISONE [Suspect]
     Active Substance: PREDNISONE
     Indication: Acute lymphocytic leukaemia
     Dosage: 126 MG
     Route: 065
     Dates: start: 20170707
  20. PREDNISONE [Suspect]
     Active Substance: PREDNISONE
     Dosage: 136 MG
     Route: 065
     Dates: start: 20170708
  21. PREDNISONE [Suspect]
     Active Substance: PREDNISONE
     Dosage: 126 MG
     Route: 065
     Dates: start: 20170709
  22. PREDNISONE [Suspect]
     Active Substance: PREDNISONE
     Dosage: 126 MG
     Route: 065
     Dates: start: 20170710
  23. PREDNISONE [Suspect]
     Active Substance: PREDNISONE
     Dosage: 126 MG
     Route: 065
     Dates: start: 20170711
  24. PREDNISONE [Suspect]
     Active Substance: PREDNISONE
     Dosage: 126 MG
     Route: 065
     Dates: start: 20170712
  25. PREDNISONE [Suspect]
     Active Substance: PREDNISONE
     Dosage: 126 MG
     Route: 065
     Dates: start: 20170713
  26. DAUNORUBICIN [Suspect]
     Active Substance: DAUNORUBICIN
     Indication: Acute lymphocytic leukaemia
     Dosage: 65 MG
     Route: 065
     Dates: start: 20170707
  27. DAUNORUBICIN [Suspect]
     Active Substance: DAUNORUBICIN
     Dosage: 65 MG
     Route: 065
     Dates: start: 20170708
  28. DAUNORUBICIN [Suspect]
     Active Substance: DAUNORUBICIN
     Dosage: 65 MG
     Route: 065
     Dates: start: 20170721
  29. DAUNORUBICIN [Suspect]
     Active Substance: DAUNORUBICIN
     Dosage: 65 MG
     Route: 065
     Dates: start: 20170722
  30. ASPARAGINASE [Suspect]
     Active Substance: ASPARAGINASE
     Indication: Acute lymphocytic leukaemia
     Dosage: 12800 UI/L
     Route: 042
     Dates: start: 20170714
  31. ASPARAGINASE [Suspect]
     Active Substance: ASPARAGINASE
     Dosage: 12800 UI/L
     Route: 042
     Dates: start: 20170716
  32. ASPARAGINASE [Suspect]
     Active Substance: ASPARAGINASE
     Dosage: 12800 UI/L
     Route: 042
     Dates: start: 20170718
  33. ASPARAGINASE [Suspect]
     Active Substance: ASPARAGINASE
     Dosage: 12800 UI/L
     Route: 042
     Dates: start: 20170726
  34. ASPARAGINASE [Suspect]
     Active Substance: ASPARAGINASE
     Dosage: 12800 UI/L
     Route: 042
     Dates: start: 20170728
  35. ASPARAGINASE [Suspect]
     Active Substance: ASPARAGINASE
     Dosage: 12800 UI/L
     Route: 042
     Dates: start: 20170730
  36. METHOTREXATE [Suspect]
     Active Substance: METHOTREXATE
     Indication: Acute lymphocytic leukaemia
     Dosage: 15 MG 2 ML
     Route: 042
     Dates: start: 20170730
  37. METHOTREXATE [Suspect]
     Active Substance: METHOTREXATE
     Dosage: 1000 MG, 5100 MG
     Route: 042
     Dates: start: 20170825
  38. METHOTREXATE [Suspect]
     Active Substance: METHOTREXATE
     Dosage: 50 MG
     Route: 042
     Dates: start: 20170829
  39. CYTARABINE [Suspect]
     Active Substance: CYTARABINE
     Indication: Acute lymphocytic leukaemia
     Dosage: 40 MG 2 ML
     Route: 042
     Dates: start: 20170730
  40. CYTARABINE [Suspect]
     Active Substance: CYTARABINE
     Dosage: 4050 MG
     Route: 042
     Dates: start: 20170811
  41. CYTARABINE [Suspect]
     Active Substance: CYTARABINE
     Dosage: 4050 MG
     Route: 042
     Dates: start: 20170812
  42. MERCAPTOPURINE [Suspect]
     Active Substance: MERCAPTOPURINE
     Indication: Acute lymphocytic leukaemia
     Dosage: 100 MG
     Route: 048
     Dates: start: 20170825
  43. MERCAPTOPURINE [Suspect]
     Active Substance: MERCAPTOPURINE
     Dosage: 100 MG
     Route: 048
     Dates: start: 20170826
  44. MERCAPTOPURINE [Suspect]
     Active Substance: MERCAPTOPURINE
     Dosage: 100 MG
     Route: 048
     Dates: start: 20170827
  45. MERCAPTOPURINE [Suspect]
     Active Substance: MERCAPTOPURINE
     Dosage: 100 MG
     Route: 048
     Dates: start: 20170828
  46. MERCAPTOPURINE [Suspect]
     Active Substance: MERCAPTOPURINE
     Dosage: 100 MG
     Route: 048
     Dates: start: 20170829
  47. ALIZAPRIDE HYDROCHLORIDE [Concomitant]
     Active Substance: ALIZAPRIDE HYDROCHLORIDE
     Indication: Product used for unknown indication
     Dosage: 100 MG
     Route: 065
     Dates: start: 20170714
  48. ALIZAPRIDE HYDROCHLORIDE [Concomitant]
     Active Substance: ALIZAPRIDE HYDROCHLORIDE
     Dosage: 100 MG
     Route: 065
     Dates: start: 20170716
  49. ALIZAPRIDE HYDROCHLORIDE [Concomitant]
     Active Substance: ALIZAPRIDE HYDROCHLORIDE
     Dosage: 100 MG
     Route: 065
     Dates: start: 20170718
  50. ALIZAPRIDE HYDROCHLORIDE [Concomitant]
     Active Substance: ALIZAPRIDE HYDROCHLORIDE
     Dosage: 100 MG
     Route: 065
     Dates: start: 20170726
  51. ALIZAPRIDE HYDROCHLORIDE [Concomitant]
     Active Substance: ALIZAPRIDE HYDROCHLORIDE
     Dosage: 100 MG
     Route: 065
     Dates: start: 20170728
  52. ALIZAPRIDE HYDROCHLORIDE [Concomitant]
     Active Substance: ALIZAPRIDE HYDROCHLORIDE
     Dosage: 100 MG
     Route: 065
     Dates: start: 20170730
  53. METHYLPREDNISOLONE [Concomitant]
     Active Substance: METHYLPREDNISOLONE
     Indication: Product used for unknown indication
     Dosage: 40 MG
     Route: 065
     Dates: start: 20170730
  54. DEXAMETHASONE [Concomitant]
     Active Substance: DEXAMETHASONE
     Indication: Product used for unknown indication
     Dosage: 10 MG
     Route: 065
     Dates: start: 20170811
  55. ONDANSETRON [Concomitant]
     Active Substance: ONDANSETRON
     Indication: Product used for unknown indication
     Dosage: 8 MG
     Route: 065
     Dates: start: 20170811
  56. ONDANSETRON [Concomitant]
     Active Substance: ONDANSETRON
     Dosage: 8 MG
     Route: 065
     Dates: start: 20170825
  57. ONDANSETRON [Concomitant]
     Active Substance: ONDANSETRON
     Indication: Product used for unknown indication
     Dosage: 8 MG
     Route: 065
     Dates: start: 20170826
  58. LEUCOVORIN CALCIUM [Concomitant]
     Active Substance: LEUCOVORIN CALCIUM
     Indication: Product used for unknown indication
     Dosage: 25 MG
     Route: 042
     Dates: start: 20170827
  59. LEUCOVORIN CALCIUM [Concomitant]
     Active Substance: LEUCOVORIN CALCIUM
     Dosage: 25 MG
     Route: 042
     Dates: start: 20170828
  60. LEUCOVORIN CALCIUM [Concomitant]
     Active Substance: LEUCOVORIN CALCIUM
     Dosage: 25 MG
     Route: 042
     Dates: start: 20170829
  61. CHLORPROMAZINE [Concomitant]
     Active Substance: CHLORPROMAZINE
     Indication: Product used for unknown indication
     Dosage: 5 DRP, Q8H (4 PERCENT SOL) (IF NEEDED)
     Route: 048
     Dates: start: 20170925, end: 20170926
  62. CHLORPROMAZINE [Concomitant]
     Active Substance: CHLORPROMAZINE
     Dosage: 50 MG, QD (25 MG AMPOULE 5 ML) INJECTION FOR ONE DAY (IF NEEDED)
     Route: 042
     Dates: start: 20170930, end: 20171001
  63. CHLORPROMAZINE [Concomitant]
     Active Substance: CHLORPROMAZINE
     Dosage: 25 MG, QD (25 MG AMPOULE 5 ML) INJECTION
     Route: 042
     Dates: start: 20171001
  64. PRIMPERAN [Concomitant]
     Active Substance: METOCLOPRAMIDE HYDROCHLORIDE
     Indication: Product used for unknown indication
     Dosage: 10 MG, Q8H
     Route: 042
     Dates: start: 20170930
  65. POLYIONIQUE [Concomitant]
     Indication: Product used for unknown indication
     Dosage: 2000 ML, QD FOR 6 DAYS
     Route: 065
     Dates: start: 20170925, end: 20171001
  66. POLYIONIQUE [Concomitant]
     Dosage: 3000 ML, QD
     Route: 065
     Dates: start: 20171001
  67. PANTOPRAZOLE [Concomitant]
     Active Substance: PANTOPRAZOLE
     Indication: Product used for unknown indication
     Dosage: 200 MG
     Route: 042
     Dates: start: 20170930, end: 20171003

REACTIONS (1)
  - Blood creatine phosphokinase increased [Recovered/Resolved]

NARRATIVE: CASE EVENT DATE: 20171001
